FAERS Safety Report 5742021-2 (Version None)
Quarter: 2008Q2

REPORT INFORMATION
  Report Type: 
  Country: None (occurrence: None)
  Receive Date: 20080515
  Receipt Date: 20080430
  Transmission Date: 20081010
  Serious: Yes (Other)
  Sender: FDA-Public Use
  Company Number: 2008SP001035

PATIENT
  Age: 49 Year
  Sex: Female
  Weight: 84 kg

DRUGS (8)
  1. XOPENEX [Suspect]
     Indication: ASTHMA
     Dosage: 0.63 MG/3ML; PRN; INHALATION, 1.25 MG/3ML; PRN; INHALATION
     Route: 055
  2. PULMICORT [Concomitant]
  3. BENADRYL /01563701/ [Concomitant]
  4. TIGAN [Concomitant]
  5. TYLENOL /00724201/ [Concomitant]
  6. FAMOTIDINE [Concomitant]
  7. DIAZEPAM [Concomitant]
  8. PROPOXYPHENE HCL AND ACETAMINOPHEN [Concomitant]

REACTIONS (9)
  - ANAEMIA [None]
  - ASTHMA [None]
  - BACK INJURY [None]
  - BACK PAIN [None]
  - DRUG DISPENSING ERROR [None]
  - DRUG INEFFECTIVE [None]
  - NASOPHARYNGITIS [None]
  - REFUSAL OF TREATMENT BY PATIENT [None]
  - WEIGHT INCREASED [None]
